FAERS Safety Report 9452527 (Version 1)
Quarter: 2013Q3

REPORT INFORMATION
  Report Type: Spontaneous
  Country: US (occurrence: None)
  Receive Date: 20130808
  Receipt Date: 20130808
  Transmission Date: 20140515
  Serious: No
  Sender: FDA-Public Use
  Company Number: None

PATIENT
  Age: 57 Year
  Sex: Female
  Weight: 90.72 kg

DRUGS (11)
  1. LEVOFLOXACIN [Suspect]
     Indication: SINUSITIS
     Route: 048
     Dates: start: 20130607, end: 20130618
  2. PROTONIX [Concomitant]
  3. ULTRAM [Concomitant]
  4. CODEINE [Concomitant]
  5. BENADRYL [Concomitant]
  6. VIT B [Concomitant]
  7. PROBIOTICS [Concomitant]
  8. FIBER [Concomitant]
  9. MULTI VITS [Concomitant]
  10. ASPIRIN [Concomitant]
  11. ALL PRN [Concomitant]

REACTIONS (7)
  - Bone pain [None]
  - Bursitis [None]
  - Arthralgia [None]
  - Muscle tightness [None]
  - Myalgia [None]
  - Tendonitis [None]
  - Pain [None]
